FAERS Safety Report 9266606 (Version 2)
Quarter: 2013Q2

REPORT INFORMATION
  Report Type: Report from Study
  Country: VE (occurrence: VE)
  Receive Date: 20130502
  Receipt Date: 20130510
  Transmission Date: 20140414
  Serious: Yes (Death, Other)
  Sender: FDA-Public Use
  Company Number: PHHY2013VE043081

PATIENT
  Sex: Male

DRUGS (1)
  1. EXJADE [Suspect]
     Indication: IRON OVERLOAD
     Dosage: 325 MG, DAILY
     Route: 048
     Dates: start: 2012

REACTIONS (5)
  - Chronic myeloid leukaemia [Fatal]
  - Malignant neoplasm progression [Fatal]
  - Fluid retention [Not Recovered/Not Resolved]
  - Renal failure [Not Recovered/Not Resolved]
  - Urinary retention [Unknown]
